FAERS Safety Report 7871320-3 (Version None)
Quarter: 2011Q4

REPORT INFORMATION
  Report Type: 
  Country: None (occurrence: None)
  Receive Date: 20111027
  Receipt Date: 20111012
  Transmission Date: 20120403
  Serious: No
  Sender: FDA-Public Use
  Company Number: APL-2011-00016

PATIENT
  Age: 65 Year
  Sex: Male
  Weight: 102.9 kg

DRUGS (15)
  1. VERSATIS (LIDOCAINE) [Concomitant]
  2. MONOMIL (ISOSORBIDE MONONITRATE) [Concomitant]
  3. ASPIRIN [Concomitant]
  4. TAMSULOSIN HCL [Concomitant]
  5. ATORVASTATIN [Concomitant]
  6. BISOPROLOL FUMARATE [Concomitant]
  7. OMEPRAZOLE [Concomitant]
  8. HYDROMORPHONE HCL [Concomitant]
  9. LORAZEPAM [Concomitant]
  10. FENTANYL [Suspect]
     Indication: CANCER PAIN
     Dosage: NASAL
     Route: 045
     Dates: start: 20110901
  11. RAMIPRIL [Concomitant]
  12. MIRTAZAPINE [Concomitant]
  13. ACETAMINOPHEN [Concomitant]
  14. PHYSEPTONE (METHADONE HYDROCHLORIDE) [Concomitant]
  15. PULMICORT [Concomitant]

REACTIONS (2)
  - PAIN [None]
  - CONDITION AGGRAVATED [None]
